FAERS Safety Report 11547523 (Version 1)
Quarter: 2015Q3

REPORT INFORMATION
  Report Type: Spontaneous
  Country: US (occurrence: US)
  Receive Date: 20150903
  Receipt Date: 20150903
  Transmission Date: 20151125
  Serious: No
  Sender: FDA-Public Use
  Company Number: US-ELI_LILLY_AND_COMPANY-US201102003515

PATIENT
  Age: 46 Year
  Sex: Male

DRUGS (2)
  1. HUMALOG [Suspect]
     Active Substance: INSULIN LISPRO
     Indication: DIABETES MELLITUS
     Dosage: UNK, OTHER
     Dates: start: 20101211
  2. LANTUS [Concomitant]
     Active Substance: INSULIN GLARGINE

REACTIONS (3)
  - Blood glucose increased [Recovering/Resolving]
  - Blood glucose decreased [Recovered/Resolved]
  - Medication error [Recovering/Resolving]

NARRATIVE: CASE EVENT DATE: 201101
